FAERS Safety Report 8759725 (Version 1)
Quarter: 2012Q4

REPORT INFORMATION
  Report Type: 
  Country: CN (occurrence: CN)
  Receive Date: 20120829
  Receipt Date: 20120829
  Transmission Date: 20130627
  Serious: Yes (Other)
  Sender: FDA-Public Use
  Company Number: CN-ROCHE-1107956

PATIENT
  Age: 0 Year
  Sex: Female
  Weight: 6 kg

DRUGS (7)
  1. ROCEPHIN [Suspect]
     Indication: BRONCHITIS
     Route: 041
     Dates: start: 20110319, end: 20110323
  2. GLUCOSE 5% [Concomitant]
     Route: 041
     Dates: start: 20110319, end: 20110323
  3. GLUCOSE 5% [Concomitant]
     Route: 041
     Dates: start: 20110319, end: 20110320
  4. VITAMIN C [Concomitant]
     Route: 041
     Dates: start: 20110319, end: 20110320
  5. VITAMIN B [Concomitant]
     Route: 041
     Dates: start: 20110319, end: 20110320
  6. SODIUM CHLORIDE 10% [Concomitant]
     Route: 041
     Dates: start: 20110319, end: 20110320
  7. POTASSIUM CHLORIDE [Concomitant]
     Route: 041
     Dates: start: 20110319, end: 20110320

REACTIONS (1)
  - Hepatic function abnormal [Recovered/Resolved]
